FAERS Safety Report 6003496-7 (Version None)
Quarter: 2008Q4

REPORT INFORMATION
  Report Type: 
  Country: None (occurrence: None)
  Receive Date: 20081215
  Receipt Date: 20081215
  Transmission Date: 20090506
  Serious: Yes (Other)
  Sender: FDA-Public Use
  Company Number: None

PATIENT
  Age: 54 Year
  Sex: Female
  Weight: 58.9676 kg

DRUGS (2)
  1. ARTHROTEC [Suspect]
     Indication: OSTEOARTHRITIS
     Dosage: 75MG  BID PO
     Route: 048
     Dates: start: 20081210, end: 20081213
  2. ARTHROTEC [Suspect]
     Indication: OSTEOARTHRITIS
     Dosage: 75MG  BID PO
     Route: 048
     Dates: start: 20081213, end: 20081214

REACTIONS (2)
  - ADNEXA UTERI PAIN [None]
  - UTERINE PAIN [None]
